FAERS Safety Report 17841271 (Version 1)
Quarter: 2020Q2

REPORT INFORMATION
  Report Type: Spontaneous
  Country: US (occurrence: US)
  Receive Date: 20200529
  Receipt Date: 20200529
  Transmission Date: 20200714
  Serious: Yes (Other)
  Sender: FDA-Public Use
  Company Number: US-ELI_LILLY_AND_COMPANY-US202005007076

PATIENT
  Age: 36 Year
  Sex: Female

DRUGS (1)
  1. EMGALITY [Suspect]
     Active Substance: GALCANEZUMAB-GNLM
     Indication: MIGRAINE
     Dosage: 120 MG, UNKNOWN
     Route: 065
     Dates: start: 201909, end: 201912

REACTIONS (15)
  - Fear of eating [Unknown]
  - Fear of injection [Unknown]
  - Feeding disorder [Unknown]
  - Pain [Unknown]
  - Insomnia [Unknown]
  - Tremor [Unknown]
  - Feeling of body temperature change [Unknown]
  - Anxiety [Unknown]
  - Hypoaesthesia [Unknown]
  - Mental impairment [Unknown]
  - Weight decreased [Unknown]
  - Immune system disorder [Unknown]
  - Peripheral coldness [Unknown]
  - Heart rate abnormal [Unknown]
  - Hypersensitivity [Not Recovered/Not Resolved]

NARRATIVE: CASE EVENT DATE: 202001
